FAERS Safety Report 7171020-1 (Version None)
Quarter: 2010Q4

REPORT INFORMATION
  Report Type: 
  Country: None (occurrence: None)
  Receive Date: 20101203
  Receipt Date: 20101102
  Transmission Date: 20110411
  Serious: Yes (Death)
  Sender: FDA-Public Use
  Company Number: LEO-2010-01066

PATIENT
  Age: 37 Year
  Sex: Female

DRUGS (3)
  1. INNOHEP [Suspect]
     Indication: CARDIAC VALVE PROSTHESIS USER
  2. INNOHEP [Suspect]
     Indication: THROMBOSIS PROPHYLAXIS
  3. ASPIRIN [Concomitant]

REACTIONS (5)
  - AORTIC THROMBOSIS [None]
  - CAESAREAN SECTION [None]
  - CARDIAC ARREST [None]
  - CARDIAC VALVE REPLACEMENT COMPLICATION [None]
  - DRUG EXPOSURE DURING PREGNANCY [None]
